FAERS Safety Report 18587847 (Version 1)
Quarter: 2020Q4

REPORT INFORMATION
  Report Type: Spontaneous
  Country: US (occurrence: US)
  Receive Date: 20201207
  Receipt Date: 20201207
  Transmission Date: 20210114
  Serious: No
  Sender: FDA-Public Use
  Company Number: US-PFIZER INC-2020456344

PATIENT
  Age: 69 Year
  Sex: Male

DRUGS (2)
  1. LYRICA [Suspect]
     Active Substance: PREGABALIN
     Dosage: 75 MG, 2X/DAY (75 MG PER 1 CAPSULE, ORAL, BID, (2 TIMES A DAY))
     Route: 048
  2. LYRICA [Suspect]
     Active Substance: PREGABALIN
     Dosage: 100 MG, 2X/DAY (100 MG PER 1 CAPSULE, ORAL , BID (2 TIMES A DAY))
     Route: 048

REACTIONS (2)
  - Pain in extremity [Unknown]
  - Memory impairment [Unknown]
